FAERS Safety Report 17690158 (Version 1)
Quarter: 2020Q2

REPORT INFORMATION
  Report Type: Spontaneous
  Country: US (occurrence: US)
  Receive Date: 20200421
  Receipt Date: 20200421
  Transmission Date: 20200714
  Serious: Yes (Hospitalization)
  Sender: FDA-Public Use
  Company Number: US-GENERICUS, INC.-2020GNR00017

PATIENT
  Sex: Female
  Weight: 34.92 kg

DRUGS (1)
  1. TOBRAMYCIN. [Suspect]
     Active Substance: TOBRAMYCIN
     Indication: CYSTIC FIBROSIS
     Dosage: 300 MG (1 VIAL) , 2X/DAY (EVERY 12 HOURS) FOR 28 DAYS ON AND 28 DAYS OFF
     Dates: start: 20190516

REACTIONS (1)
  - Condition aggravated [Not Recovered/Not Resolved]
